FAERS Safety Report 23653007 (Version 1)
Quarter: 2024Q1

REPORT INFORMATION
  Report Type: Report from Study
  Country: US (occurrence: US)
  Receive Date: 20240320
  Receipt Date: 20240320
  Transmission Date: 20240410
  Serious: Yes (Hospitalization)
  Sender: FDA-Public Use
  Company Number: US-MYLANLABS-2024M1025883

PATIENT
  Age: 26 Year
  Sex: Female

DRUGS (2)
  1. BIVALIRUDIN [Suspect]
     Active Substance: BIVALIRUDIN
     Indication: Anticoagulant therapy
     Dosage: 0.05 MILLIGRAM/KILOGRAM, QH (INITIAL DOSAGE)
     Route: 065
  2. BIVALIRUDIN [Suspect]
     Active Substance: BIVALIRUDIN
     Dosage: 0.17 MILLIGRAM/KILOGRAM, QH (STABLE DOSAGE)
     Route: 065

REACTIONS (1)
  - Drug ineffective [Unknown]
